FAERS Safety Report 13296599 (Version 2)
Quarter: 2017Q4

REPORT INFORMATION
  Report Type: Report from Study
  Country: MX (occurrence: MX)
  Receive Date: 20170306
  Receipt Date: 20171108
  Transmission Date: 20180320
  Serious: Yes (Other)
  Sender: FDA-Public Use
  Company Number: PHHY2017MX033103

PATIENT
  Sex: Female

DRUGS (9)
  1. EXELON PATCH [Suspect]
     Active Substance: RIVASTIGMINE
     Indication: AMNESIA
     Dosage: 13.3 MG, PATCH 15 (CM2) QD
     Route: 062
     Dates: start: 201611
  2. LOSARTAN. [Concomitant]
     Active Substance: LOSARTAN
     Indication: PRODUCT USED FOR UNKNOWN INDICATION
     Route: 065
  3. PLAVIX [Concomitant]
     Active Substance: CLOPIDOGREL BISULFATE
     Indication: PRODUCT USED FOR UNKNOWN INDICATION
     Route: 065
  4. NEUPAX [Concomitant]
     Indication: PRODUCT USED FOR UNKNOWN INDICATION
     Route: 065
  5. NIMOTOP [Concomitant]
     Active Substance: NIMODIPINE
     Indication: PRODUCT USED FOR UNKNOWN INDICATION
     Route: 065
  6. EXELON PATCH [Suspect]
     Active Substance: RIVASTIGMINE
     Indication: CEREBRAL INFARCTION
  7. RIVOTRIL [Concomitant]
     Active Substance: CLONAZEPAM
     Indication: PRODUCT USED FOR UNKNOWN INDICATION
     Route: 065
  8. LAMOBRIGAN [Concomitant]
     Indication: PRODUCT USED FOR UNKNOWN INDICATION
     Route: 065
  9. ANGIOTROFIN [Concomitant]
     Active Substance: DILTIAZEM HYDROCHLORIDE
     Indication: PRODUCT USED FOR UNKNOWN INDICATION
     Route: 065

REACTIONS (8)
  - Cognitive disorder [Unknown]
  - Confusional state [Unknown]
  - Amnesia [Unknown]
  - Personality change [Unknown]
  - Feeling abnormal [Unknown]
  - Dementia Alzheimer^s type [Unknown]
  - Product use in unapproved indication [Not Recovered/Not Resolved]
  - Malaise [Unknown]
